FAERS Safety Report 13362715 (Version 1)
Quarter: 2017Q1

REPORT INFORMATION
  Report Type: Report from Study
  Country: US (occurrence: US)
  Receive Date: 20170323
  Receipt Date: 20170323
  Transmission Date: 20170429
  Serious: Yes (Hospitalization)
  Sender: FDA-Public Use
  Company Number: PHHO2017US002427

PATIENT
  Sex: Male
  Weight: 75.9 kg

DRUGS (2)
  1. GSK2141795 [Suspect]
     Active Substance: UPROSERTIB
     Indication: ACUTE MYELOID LEUKAEMIA
     Dosage: 25 MG, QD
     Route: 048
     Dates: start: 20150805, end: 20150901
  2. MEKINIST [Suspect]
     Active Substance: TRAMETINIB DIMETHYL SULFOXIDE
     Indication: ACUTE MYELOID LEUKAEMIA
     Dosage: 2 MG, QD
     Route: 048
     Dates: start: 20150805, end: 20150827

REACTIONS (2)
  - Gastrointestinal necrosis [Not Recovered/Not Resolved]
  - Febrile neutropenia [Recovered/Resolved]

NARRATIVE: CASE EVENT DATE: 20150815
